FAERS Safety Report 11278096 (Version 2)
Quarter: 2015Q3

REPORT INFORMATION
  Report Type: Spontaneous
  Country: CN (occurrence: CN)
  Receive Date: 20150717
  Receipt Date: 20150722
  Transmission Date: 20151125
  Serious: Yes (Hospitalization, Other)
  Sender: FDA-Public Use
  Company Number: CN-JNJFOC-20150707077

PATIENT
  Age: 61 Year
  Sex: Male
  Weight: 58 kg

DRUGS (3)
  1. CEFIXIME. [Suspect]
     Active Substance: CEFIXIME
     Indication: PYREXIA
     Route: 048
     Dates: start: 20150222, end: 20150225
  2. CEFIXIME. [Suspect]
     Active Substance: CEFIXIME
     Indication: COUGH
     Route: 048
     Dates: start: 20150222, end: 20150225
  3. MOTRIN [Suspect]
     Active Substance: IBUPROFEN
     Indication: PYREXIA
     Route: 048
     Dates: start: 20150224, end: 20150225

REACTIONS (5)
  - Chills [Unknown]
  - Rash [Recovered/Resolved]
  - Temperature intolerance [None]
  - Liver function test abnormal [Recovered/Resolved]
  - Jaundice [Recovered/Resolved]

NARRATIVE: CASE EVENT DATE: 201502
